FAERS Safety Report 18711869 (Version 2)
Quarter: 2021Q3

REPORT INFORMATION
  Report Type: Spontaneous
  Country: CA (occurrence: CA)
  Receive Date: 20210107
  Receipt Date: 20210902
  Transmission Date: 20211014
  Serious: Yes (Death, Life-Threatening, Hospitalization, Other)
  Sender: FDA-Public Use
  Company Number: CA-APOTEX-2021AP001010

PATIENT
  Age: 64 Year
  Sex: Female

DRUGS (1)
  1. ACETAMINOPHEN. [Suspect]
     Active Substance: ACETAMINOPHEN
     Indication: INTENTIONAL OVERDOSE
     Dosage: 75 MILLIGRAM, 150 TABLET, TOTAL
     Route: 048

REACTIONS (12)
  - Intentional product misuse [Fatal]
  - Hepatic encephalopathy [Unknown]
  - Acute hepatic failure [Fatal]
  - Metabolic acidosis [Fatal]
  - Hypernatraemia [Fatal]
  - Encephalopathy [Fatal]
  - Oliguria [Fatal]
  - Haemodynamic instability [Fatal]
  - Intentional overdose [Fatal]
  - Hypercalcaemia [Fatal]
  - Confusional state [Unknown]
  - Blood creatinine increased [Fatal]
